FAERS Safety Report 13927903 (Version 2)
Quarter: 2018Q2

REPORT INFORMATION
  Report Type: Spontaneous
  Country: BR (occurrence: BR)
  Receive Date: 20170901
  Receipt Date: 20180430
  Transmission Date: 20180711
  Serious: Yes (Other)
  Sender: FDA-Public Use
  Company Number: BR-AMGEN-BRASP2017115686

PATIENT
  Sex: Female
  Weight: 2.49 kg

DRUGS (1)
  1. ENBREL [Suspect]
     Active Substance: ETANERCEPT
     Indication: EXPOSURE DURING PREGNANCY
     Dosage: 50 MG, WEEKLY
     Route: 064
     Dates: start: 2012, end: 2013

REACTIONS (7)
  - Shock [Unknown]
  - Tongue injury [Unknown]
  - Maternal exposure before pregnancy [Unknown]
  - Anaesthetic complication [Unknown]
  - Allergic bronchitis [Unknown]
  - Urinary tract infection [Unknown]
  - Fall [Unknown]
